FAERS Safety Report 7277191-0 (Version None)
Quarter: 2011Q1

REPORT INFORMATION
  Report Type: 
  Country: None (occurrence: None)
  Receive Date: 20110131
  Receipt Date: 20110114
  Transmission Date: 20110831
  Serious: Yes (Hospitalization)
  Sender: FDA-Public Use
  Company Number: 023632

PATIENT
  Age: 65 Year
  Sex: Male

DRUGS (2)
  1. DEPAKENE [Concomitant]
  2. LEVETIRACETAM [Suspect]
     Indication: EPILEPSY
     Dosage: (1000 MG AT THERAPY INIITATION, GRADUALLY INCREASED (DOSE NOT SPECIFIED))
     Dates: start: 20060718, end: 20061020

REACTIONS (1)
  - DEPRESSION [None]
